FAERS Safety Report 6776566 (Version 3)
Quarter: 2018Q2

REPORT INFORMATION
  Report Type: Spontaneous
  Country: JP (occurrence: JP)
  Receive Date: 20081001
  Receipt Date: 20180424
  Transmission Date: 20180711
  Serious: Yes (Life-Threatening, Hospitalization, Other)
  Sender: FDA-Public Use
  Company Number: JP-PFIZER INC-2006063338

PATIENT
  Age: 57 Year
  Sex: Male
  Weight: 45 kg

DRUGS (6)
  1. VFEND [Suspect]
     Active Substance: VORICONAZOLE
     Dosage: 360 MG, 1X/DAY
     Route: 042
     Dates: start: 20060427, end: 20060427
  2. MICAFUNGIN [Concomitant]
     Active Substance: MICAFUNGIN
     Dosage: UNK
     Route: 042
     Dates: start: 20060406, end: 20060424
  3. VFEND [Suspect]
     Active Substance: VORICONAZOLE
     Indication: BRONCHOPULMONARY ASPERGILLOSIS
     Dosage: 270 MG, 2X/DAY
     Route: 042
     Dates: start: 20060425, end: 20060426
  4. VFEND [Suspect]
     Active Substance: VORICONAZOLE
     Dosage: 180 MG, 2X/DAY
     Route: 042
     Dates: start: 20060428, end: 20060428
  5. VFEND [Suspect]
     Active Substance: VORICONAZOLE
     Dosage: 180 MG, 2X/DAY
     Route: 042
     Dates: start: 20060426, end: 20060427
  6. MYSLEE [Suspect]
     Active Substance: ZOLPIDEM TARTRATE
     Dosage: UNK
     Route: 048
     Dates: start: 20060408, end: 20060501

REACTIONS (8)
  - Mental disorder [Recovered/Resolved]
  - Intentional self-injury [Unknown]
  - Hallucination, visual [Unknown]
  - Hallucination, auditory [Unknown]
  - Depression [Recovered/Resolved]
  - Amnesia [Recovered/Resolved]
  - Photophobia [Recovered/Resolved]
  - Drug administration error [Recovered/Resolved]

NARRATIVE: CASE EVENT DATE: 20060425
